FAERS Safety Report 8588576-4 (Version None)
Quarter: 2012Q3

REPORT INFORMATION
  Report Type: 
  Country: None (occurrence: None)
  Receive Date: 20120731
  Receipt Date: 20120724
  Transmission Date: 20120928
  Serious: Yes (Other)
  Sender: FDA-Public Use
  Company Number: CIP-2012-00246

PATIENT
  Sex: Female

DRUGS (7)
  1. CARBOPLATIN [Suspect]
     Indication: OVARIAN CANCER
     Dosage: AUC 7 RECONSTITUTED WITH ONE LITER NORMAL SALINE (DAY 1;REPEATED EVERY 21 DAYS),INTRAPERITONEAL
     Route: 033
  2. CARBOPLATIN [Suspect]
     Indication: MALIGNANT PERITONEAL NEOPLASM
     Dosage: AUC 7 RECONSTITUTED WITH ONE LITER NORMAL SALINE (DAY 1;REPEATED EVERY 21 DAYS),INTRAPERITONEAL
     Route: 033
  3. CARBOPLATIN [Suspect]
     Indication: FALLOPIAN TUBE CANCER
     Dosage: AUC 7 RECONSTITUTED WITH ONE LITER NORMAL SALINE (DAY 1;REPEATED EVERY 21 DAYS),INTRAPERITONEAL
     Route: 033
  4. PACLITAXEL [Suspect]
     Indication: OVARIAN CANCER
     Dosage: 60 MG/M2 RECONSTITUTED WITH ONE LITER NORMAL SALINE (DAY 8; REPEATED EVERY 21 DAYS),INTRAPERITONEAL
     Route: 033
  5. PACLITAXEL [Suspect]
     Indication: FALLOPIAN TUBE CANCER
     Dosage: 60 MG/M2 RECONSTITUTED WITH ONE LITER NORMAL SALINE (DAY 8; REPEATED EVERY 21 DAYS),INTRAPERITONEAL
     Route: 033
  6. PACLITAXEL [Suspect]
     Indication: FALLOPIAN TUBE CANCER
     Dosage: 175 MG/M2 (DAY 1;REPEATED EVERY 21 DAYS),INTRAVENOUS
     Route: 042
  7. PACLITAXEL [Suspect]
     Indication: OVARIAN CANCER
     Dosage: 175 MG/M2 (DAY 1;REPEATED EVERY 21 DAYS),INTRAVENOUS
     Route: 042

REACTIONS (7)
  - CLOSTRIDIUM DIFFICILE COLITIS [None]
  - NEUTROPENIA [None]
  - HYPOPHOSPHATAEMIA [None]
  - KLEBSIELLA BACTERAEMIA [None]
  - THROMBOCYTOPENIA [None]
  - TINNITUS [None]
  - FATIGUE [None]
